FAERS Safety Report 17858906 (Version 2)
Quarter: 2020Q2

REPORT INFORMATION
  Report Type: Spontaneous
  Country: SK (occurrence: SK)
  Receive Date: 20200604
  Receipt Date: 20200619
  Transmission Date: 20200714
  Serious: Yes (Death)
  Sender: FDA-Public Use
  Company Number: SK-ROCHE-2614556

PATIENT
  Age: 76 Year
  Sex: Male

DRUGS (1)
  1. XOLAIR [Suspect]
     Active Substance: OMALIZUMAB
     Indication: CHRONIC OBSTRUCTIVE PULMONARY DISEASE
     Dosage: RECEIVED MOST RECENT DOSE ON FEB/2020
     Route: 065
     Dates: start: 20071129

REACTIONS (5)
  - Chronic obstructive pulmonary disease [Fatal]
  - Off label use [Unknown]
  - Emphysema [Fatal]
  - Product use in unapproved indication [Unknown]
  - Cardiac failure [Fatal]
